FAERS Safety Report 19877763 (Version 1)
Quarter: 2021Q3

REPORT INFORMATION
  Report Type: Spontaneous
  Country: US (occurrence: US)
  Receive Date: 20210923
  Receipt Date: 20210923
  Transmission Date: 20211014
  Serious: No
  Sender: FDA-Public Use
  Company Number: US-MYLANLABS-2021M1062511

PATIENT
  Sex: Male
  Weight: 73 kg

DRUGS (1)
  1. CLONIDINE TRANSDERMAL SYSTEM [Suspect]
     Active Substance: CLONIDINE
     Indication: HYPERTENSION
     Dosage: 0.3 MILLIGRAM, QD (ONCE A WEEK)
     Route: 062
     Dates: start: 20210607

REACTIONS (3)
  - Application site rash [Recovered/Resolved]
  - Application site mass [Recovered/Resolved]
  - Application site pruritus [Recovered/Resolved]
